FAERS Safety Report 25171026 (Version 1)
Quarter: 2025Q2

REPORT INFORMATION
  Report Type: Spontaneous
  Country: CA (occurrence: CA)
  Receive Date: 20250408
  Receipt Date: 20250408
  Transmission Date: 20250717
  Serious: Yes (Hospitalization, Other)
  Sender: ACCORD
  Company Number: None

PATIENT
  Age: 53 Year
  Sex: Male
  Weight: 102 kg

DRUGS (11)
  1. ROSUVASTATIN CALCIUM [Suspect]
     Active Substance: ROSUVASTATIN CALCIUM
     Indication: Cardiovascular event prophylaxis
     Route: 048
  2. ATORVASTATIN [Suspect]
     Active Substance: ATORVASTATIN
     Indication: Cardiovascular event prophylaxis
     Route: 048
  3. SOFOSBUVIR [Suspect]
     Active Substance: SOFOSBUVIR
     Indication: Hepatitis C
  4. AMLODIPINE [Concomitant]
     Active Substance: AMLODIPINE BESYLATE
  5. CARVEDILOL [Concomitant]
     Active Substance: CARVEDILOL
  6. POLYETHYLENE GLYCOL [Concomitant]
     Active Substance: POLYETHYLENE GLYCOL
     Route: 048
  7. LAXILOSE [Concomitant]
     Route: 048
  8. OMEPRAZOLE [Concomitant]
     Active Substance: OMEPRAZOLE
  9. TICAGRELOR [Concomitant]
     Active Substance: TICAGRELOR
  10. VITAMIN B1 [Concomitant]
     Active Substance: THIAMINE HYDROCHLORIDE
  11. SOFOSBUVIR [Suspect]
     Active Substance: SOFOSBUVIR
     Indication: Hepatitis C

REACTIONS (2)
  - Muscle necrosis [Not Recovered/Not Resolved]
  - Rhabdomyolysis [Not Recovered/Not Resolved]
